FAERS Safety Report 23199219 (Version 1)
Quarter: 2023Q4

REPORT INFORMATION
  Report Type: Spontaneous
  Country: US (occurrence: US)
  Receive Date: 20231117
  Receipt Date: 20231117
  Transmission Date: 20240110
  Serious: No
  Sender: FDA-Public Use
  Company Number: US-Stemline Therapeutics, Inc.-2023ST003014

PATIENT
  Age: 71 Year
  Sex: Female

DRUGS (29)
  1. ORSERDU [Suspect]
     Active Substance: ELACESTRANT
     Indication: Product used for unknown indication
     Dosage: 86MG ONCE DAILY.
     Route: 048
     Dates: start: 202307
  2. ADVIL 6 PLUS [Concomitant]
  3. ANASTROZOLE [Concomitant]
     Active Substance: ANASTROZOLE
  4. CALTRATE VITAMIN D DAILY [Concomitant]
  5. ERGOCALCIFEROL [Concomitant]
     Active Substance: ERGOCALCIFEROL
  6. MINERALS [Concomitant]
     Active Substance: MINERALS
  7. CEFDINIR [Concomitant]
     Active Substance: CEFDINIR
  8. DEXAMETHASONE [Concomitant]
     Active Substance: DEXAMETHASONE
  9. DRAMAMINE [Concomitant]
     Active Substance: DIMENHYDRINATE
  10. DIETARY SUPPLEMENT\HERBALS [Concomitant]
     Active Substance: DIETARY SUPPLEMENT\HERBALS
  11. FAMOTIDINE [Concomitant]
     Active Substance: FAMOTIDINE
  12. FLEXERIL [Concomitant]
     Active Substance: CYCLOBENZAPRINE HYDROCHLORIDE
  13. GABAPENTIN [Concomitant]
     Active Substance: GABAPENTIN
  14. HYDROCORTISONE [Concomitant]
     Active Substance: HYDROCORTISONE
  15. IBRANCE [Concomitant]
     Active Substance: PALBOCICLIB
  16. LIDOCAINE [Concomitant]
     Active Substance: LIDOCAINE
  17. PRILOCAINE [Concomitant]
     Active Substance: PRILOCAINE
  18. LORAZEPAM [Concomitant]
     Active Substance: LORAZEPAM
  19. MAGNESIUM [Concomitant]
     Active Substance: MAGNESIUM
  20. MELATONIN [Concomitant]
     Active Substance: MELATONIN
  21. MIRALAX [Concomitant]
     Active Substance: POLYETHYLENE GLYCOL 3350
  22. MORPHINE [Concomitant]
     Active Substance: MORPHINE
  23. NALOXONE [Concomitant]
     Active Substance: NALOXONE
  24. OCUVITE LUTEIN FORTE [Concomitant]
  25. ONDANSETRON [Concomitant]
     Active Substance: ONDANSETRON
  26. TYLENOL [Concomitant]
     Active Substance: ACETAMINOPHEN
  27. ASCORBIC ACID [Concomitant]
     Active Substance: ASCORBIC ACID
  28. VITAMINS D3 [Concomitant]
  29. XGEVA [Concomitant]
     Active Substance: DENOSUMAB

REACTIONS (2)
  - Nausea [Not Recovered/Not Resolved]
  - Vomiting [Not Recovered/Not Resolved]
